FAERS Safety Report 11890773 (Version 1)
Quarter: 2016Q1

REPORT INFORMATION
  Report Type: Spontaneous
  Country: AU (occurrence: AU)
  Receive Date: 20160106
  Receipt Date: 20160106
  Transmission Date: 20160526
  Serious: Yes (Other)
  Sender: FDA-Public Use
  Company Number: AU-CIPLA LTD.-2015AU09960

PATIENT

DRUGS (2)
  1. ETOPOSIDE. [Suspect]
     Active Substance: ETOPOSIDE
     Indication: NEUROENDOCRINE CARCINOMA OF THE SKIN
     Dosage: 80 MG/M2 I.V. (DAYS 1-3), GIVEN IN WEEKS 1, 4, 7 AND 10
     Route: 042
  2. CARBOPLATIN. [Suspect]
     Active Substance: CARBOPLATIN
     Indication: NEUROENDOCRINE CARCINOMA OF THE SKIN
     Dosage: AUC 5 OR 4.5 I.V. (DAYS 1-3), GIVEN IN WEEKS 1, 4, 7 AND 10
     Route: 042

REACTIONS (1)
  - Metastasis [Unknown]
